FAERS Safety Report 7812914-0 (Version None)
Quarter: 2011Q4

REPORT INFORMATION
  Report Type: 
  Country: None (occurrence: None)
  Receive Date: 20111013
  Receipt Date: 20111004
  Transmission Date: 20120403
  Serious: Yes (Other)
  Sender: FDA-Public Use
  Company Number: US-US-EMD SERONO, INC.-7086330

PATIENT
  Sex: Female

DRUGS (3)
  1. NUVIGIL [Concomitant]
     Indication: SLEEP DISORDER
  2. WATER PILL [Concomitant]
     Indication: FLUID RETENTION
  3. REBIF [Suspect]
     Indication: MULTIPLE SCLEROSIS
     Route: 058
     Dates: start: 20100929

REACTIONS (6)
  - INJECTION SITE ERYTHEMA [None]
  - HYPERTENSION [None]
  - CYANOSIS [None]
  - LOCALISED INFECTION [None]
  - IMPAIRED HEALING [None]
  - PAIN IN EXTREMITY [None]
